FAERS Safety Report 7706328-1 (Version None)
Quarter: 2011Q3

REPORT INFORMATION
  Report Type: 
  Country: None (occurrence: None)
  Receive Date: 20110824
  Receipt Date: 20110816
  Transmission Date: 20111222
  Serious: Yes (Death)
  Sender: FDA-Public Use
  Company Number: DE-JNJFOC-20110510147

PATIENT
  Age: 64 Year
  Sex: Female

DRUGS (1)
  1. REMICADE [Suspect]
     Indication: RHEUMATOID ARTHRITIS
     Route: 042
     Dates: start: 20030401

REACTIONS (6)
  - SEPTIC SHOCK [None]
  - AMPUTATION [None]
  - DIABETES MELLITUS [None]
  - RENAL FAILURE ACUTE [None]
  - CELLULITIS [None]
  - MULTI-ORGAN FAILURE [None]
